FAERS Safety Report 11823995 (Version 1)
Quarter: 2015Q4

REPORT INFORMATION
  Report Type: Spontaneous
  Country: JP (occurrence: JP)
  Receive Date: 20151210
  Receipt Date: 20151210
  Transmission Date: 20160305
  Serious: Yes (Death, Hospitalization, Other)
  Sender: FDA-Public Use
  Company Number: JP-JNJFOC-20151205567

PATIENT
  Age: 9 Decade
  Sex: Male

DRUGS (5)
  1. ZYTIGA [Suspect]
     Active Substance: ABIRATERONE ACETATE
     Indication: PROSTATE CANCER
     Route: 048
     Dates: start: 20150715, end: 20150728
  2. PREDNISOLONE. [Concomitant]
     Active Substance: PREDNISOLONE
     Indication: PROSTATE CANCER
     Route: 065
  3. REBAMIPIDE [Concomitant]
     Active Substance: REBAMIPIDE
     Route: 065
  4. LOXOPROFEN [Concomitant]
     Active Substance: LOXOPROFEN
     Route: 065
  5. ZYTIGA [Suspect]
     Active Substance: ABIRATERONE ACETATE
     Indication: PROSTATE CANCER
     Route: 048
     Dates: start: 20150411, end: 20150519

REACTIONS (4)
  - Hepatic function abnormal [Fatal]
  - Duodenal perforation [Unknown]
  - Metastases to liver [Unknown]
  - Peritonitis [Fatal]

NARRATIVE: CASE EVENT DATE: 20150728
